FAERS Safety Report 10969475 (Version 2)
Quarter: 2015Q2

REPORT INFORMATION
  Report Type: Report from Study
  Country: US (occurrence: US)
  Receive Date: 20150331
  Receipt Date: 20150415
  Transmission Date: 20150821
  Serious: Yes (Hospitalization, Other)
  Sender: FDA-Public Use
  Company Number: US-BIOGENIDEC-2015BI039094

PATIENT
  Sex: Female

DRUGS (1)
  1. AVONEX [Suspect]
     Active Substance: INTERFERON BETA-1A
     Indication: MULTIPLE SCLEROSIS
     Route: 030
     Dates: start: 20080730, end: 20140403

REACTIONS (21)
  - Secondary progressive multiple sclerosis [Not Recovered/Not Resolved]
  - Multiple sclerosis [Unknown]
  - Coordination abnormal [Not Recovered/Not Resolved]
  - Goitre [Not Recovered/Not Resolved]
  - Cerebrovascular accident [Recovered/Resolved]
  - Speech disorder [Not Recovered/Not Resolved]
  - Mobility decreased [Not Recovered/Not Resolved]
  - Hypertension [Not Recovered/Not Resolved]
  - Joint dislocation [Recovered/Resolved]
  - Jaw fracture [Recovered/Resolved]
  - Pulmonary sarcoidosis [Not Recovered/Not Resolved]
  - Peripheral swelling [Unknown]
  - Bone disorder [Not Recovered/Not Resolved]
  - Fall [Recovered/Resolved]
  - Clavicle fracture [Recovered/Resolved]
  - Areflexia [Not Recovered/Not Resolved]
  - Renal impairment [Not Recovered/Not Resolved]
  - Memory impairment [Not Recovered/Not Resolved]
  - Contusion [Recovered/Resolved]
  - Visual acuity reduced [Not Recovered/Not Resolved]
  - Arthralgia [Recovered/Resolved]

NARRATIVE: CASE EVENT DATE: 2009
